FAERS Safety Report 8984776 (Version 1)
Quarter: 2012Q4

REPORT INFORMATION
  Report Type: Spontaneous
  Country: US (occurrence: None)
  Receive Date: 20121214
  Receipt Date: 20121214
  Transmission Date: 20130627
  Serious: No
  Sender: FDA-Public Use
  Company Number: 2012P1066501

PATIENT
  Age: 53 Year
  Sex: Male

DRUGS (2)
  1. INFUMORPH [Suspect]
  2. CLONIDINE [Suspect]

REACTIONS (4)
  - Drug effect decreased [None]
  - Headache [None]
  - Device failure [None]
  - Hypertension [None]
